FAERS Safety Report 13745912 (Version 1)
Quarter: 2017Q3

REPORT INFORMATION
  Report Type: Spontaneous
  Country: US (occurrence: US)
  Receive Date: 20170712
  Receipt Date: 20170712
  Transmission Date: 20171127
  Serious: No
  Sender: FDA-Public Use
  Company Number: US-GLAXOSMITHKLINE-US2017103075

PATIENT
  Age: 28 Year
  Sex: Female

DRUGS (1)
  1. TARGET NICOTINE [Suspect]
     Active Substance: NICOTINE
     Indication: SMOKING CESSATION THERAPY
     Dosage: 21 MG, UNK (I HAD TO USE MULTIPLES IN A DAY)

REACTIONS (6)
  - Burning sensation [Not Recovered/Not Resolved]
  - Product quality issue [Unknown]
  - Inappropriate schedule of drug administration [Unknown]
  - Application site erythema [Not Recovered/Not Resolved]
  - Application site reaction [Unknown]
  - Application site dryness [Unknown]
